FAERS Safety Report 5902014-9 (Version None)
Quarter: 2008Q3

REPORT INFORMATION
  Report Type: 
  Country: None (occurrence: None)
  Receive Date: 20080909
  Receipt Date: 20080506
  Transmission Date: 20090109
  Serious: Yes (Other)
  Sender: FDA-Public Use
  Company Number: US-WYE-H04033008

PATIENT
  Age: 21 Year
  Sex: Female

DRUGS (1)
  1. ADVIL [Suspect]
     Indication: ANALGESIA
     Dosage: 1 TO 2 LIQUI-GELS AS NEEDED, ORAL
     Route: 048
     Dates: start: 20070901

REACTIONS (1)
  - NECK PAIN [None]
